FAERS Safety Report 4709625-7 (Version None)
Quarter: 2005Q3

REPORT INFORMATION
  Report Type: 
  Country: None (occurrence: None)
  Receive Date: 20050707
  Receipt Date: 20050616
  Transmission Date: 20060218
  Serious: Yes (Death, Hospitalization, Other)
  Sender: FDA-Public Use
  Company Number: US_0506118951

PATIENT
  Sex: Female

DRUGS (2)
  1. FORTEO [Suspect]
     Indication: BONE DISORDER
     Dosage: 40 UG
     Dates: start: 20031101, end: 20041101
  2. FORTEO [Suspect]
     Indication: FRACTURE
     Dosage: 40 UG
     Dates: start: 20031101, end: 20041101

REACTIONS (4)
  - ACUTE RESPIRATORY DISTRESS SYNDROME [None]
  - CALLUS FORMATION DELAYED [None]
  - COUGH [None]
  - DYSPNOEA [None]
